FAERS Safety Report 9641575 (Version 1)
Quarter: 2013Q4

REPORT INFORMATION
  Report Type: Spontaneous
  Country: IR (occurrence: None)
  Receive Date: 20131021
  Receipt Date: 20131021
  Transmission Date: 20140711
  Serious: Yes (Other)
  Sender: FDA-Public Use
  Company Number: FK201304626

PATIENT
  Age: 11 Year
  Sex: Male

DRUGS (4)
  1. PROPRANOLOL HYDROCHLORIDE (PROPRANOLOL HYDROCHLORIDE) [Suspect]
     Indication: TREMOR
  2. RISPERIDONE(RISPERIDONE) [Concomitant]
  3. SODIUM VALPROATE(VALPROATE SODIUM) [Concomitant]
  4. BENZODIAZEPINE DERIVATIVES(BENZODIAZEPINE DERIVATIVES) [Concomitant]

REACTIONS (1)
  - Mania [None]
